FAERS Safety Report 6894787-6 (Version None)
Quarter: 2010Q3

REPORT INFORMATION
  Report Type: 
  Country: None (occurrence: None)
  Receive Date: 20100708
  Receipt Date: 20100429
  Transmission Date: 20110219
  Serious: Yes (Other)
  Sender: FDA-Public Use
  Company Number: 2010049068

PATIENT
  Age: 38 Year
  Sex: Female

DRUGS (1)
  1. CHANTIX [Suspect]
     Indication: SMOKING CESSATION THERAPY
     Dates: start: 20100101, end: 20100413

REACTIONS (4)
  - ABDOMINAL PAIN UPPER [None]
  - DEPRESSION [None]
  - FEELING ABNORMAL [None]
  - GASTRITIS [None]
